FAERS Safety Report 7588141-1 (Version None)
Quarter: 2011Q3

REPORT INFORMATION
  Report Type: 
  Country: None (occurrence: None)
  Receive Date: 20110705
  Receipt Date: 20110607
  Transmission Date: 20111222
  Serious: Yes (Hospitalization, Other)
  Sender: FDA-Public Use
  Company Number: US-BAYER-201035080NA

PATIENT
  Age: 27 Year
  Sex: Female
  Weight: 72.562 kg

DRUGS (10)
  1. ALBUTEROL SULFATE AUTOHALER [Concomitant]
  2. PROAIR HFA [Concomitant]
  3. IBUPROFEN [Concomitant]
  4. FLOVENT [Concomitant]
  5. PREDNISONE [Concomitant]
  6. YASMIN [Suspect]
     Indication: PREMENSTRUAL SYNDROME
     Dosage: UNK UNK, UNK
     Route: 048
     Dates: start: 20050101, end: 20070101
  7. VENTOLIN HFA [Concomitant]
  8. DROSPIRENONE AND ETHINYL ESTRADIOL [Suspect]
     Indication: PREMENSTRUAL SYNDROME
     Dosage: UNK UNK, UNK
     Route: 048
     Dates: start: 20080801, end: 20090501
  9. NAPROXEN [Concomitant]
  10. CLARITIN-D 24 HOUR [Concomitant]

REACTIONS (2)
  - GALLBLADDER INJURY [None]
  - CHOLECYSTITIS CHRONIC [None]
